FAERS Safety Report 8061374-6 (Version None)
Quarter: 2012Q1

REPORT INFORMATION
  Report Type: 
  Country: None (occurrence: None)
  Receive Date: 20120120
  Receipt Date: 20120111
  Transmission Date: 20120608
  Serious: Yes (Other)
  Sender: FDA-Public Use
  Company Number: US-ASTRAZENECA-2012SE02448

PATIENT
  Age: 60 Year
  Sex: Female
  Weight: 103.9 kg

DRUGS (26)
  1. PRILOSEC [Suspect]
     Route: 048
  2. IBUPROFEN [Concomitant]
  3. ISOPTIN [Concomitant]
  4. CALCIUM [Concomitant]
  5. CRANBERRY [Concomitant]
  6. LEVOTHYROXINE SODIUM [Concomitant]
  7. AROMASIN [Concomitant]
  8. VITAMIN D [Concomitant]
  9. POTASSIUM CHLORIDE [Concomitant]
  10. FOLIC ACID [Concomitant]
  11. LOVASTATIN [Concomitant]
  12. TRAMADOL HCL [Concomitant]
  13. VENTOLIN [Concomitant]
  14. BACLOFEN [Concomitant]
  15. BENTYL [Concomitant]
  16. XANAX [Concomitant]
  17. METAMUCIL-2 [Concomitant]
  18. IRON [Concomitant]
  19. JANUMET [Concomitant]
  20. LISINOPRIL AND HYDROCHLOROTHIAZIDE [Suspect]
     Route: 048
  21. AMYTRYPTILINE [Concomitant]
  22. ASCORBIC ACID [Concomitant]
  23. MULTI-VITAMIN [Concomitant]
  24. VITAMIN B6 [Concomitant]
  25. VITAMIN B-12 [Concomitant]
  26. ACIDOPHILUS [Concomitant]

REACTIONS (20)
  - TYPE 2 DIABETES MELLITUS [None]
  - GASTRITIS [None]
  - BURNING SENSATION [None]
  - OESOPHAGITIS [None]
  - DIARRHOEA [None]
  - ABDOMINAL PAIN [None]
  - DYSPEPSIA [None]
  - BREAST CANCER [None]
  - REGURGITATION [None]
  - HYPERTENSION [None]
  - DRUG INEFFECTIVE [None]
  - ARTHRALGIA [None]
  - IRRITABLE BOWEL SYNDROME [None]
  - HYPOTHYROIDISM [None]
  - ASTHMA [None]
  - ARTHRITIS [None]
  - ANXIETY [None]
  - HAEMORRHOIDS [None]
  - SLEEP APNOEA SYNDROME [None]
  - GASTROOESOPHAGEAL REFLUX DISEASE [None]
